FAERS Safety Report 10193707 (Version 1)
Quarter: 2014Q2

REPORT INFORMATION
  Report Type: Spontaneous
  Country: US (occurrence: US)
  Receive Date: 20140524
  Receipt Date: 20140524
  Transmission Date: 20141212
  Serious: No
  Sender: FDA-Public Use
  Company Number: US-SA-2014SA000448

PATIENT
  Age: 75 Year
  Sex: Male

DRUGS (3)
  1. SOLOSTAR [Concomitant]
  2. NPH INSULIN [Concomitant]
     Route: 065
     Dates: start: 1998
  3. LANTUS SOLOSTAR [Suspect]
     Indication: TYPE 1 DIABETES MELLITUS
     Dosage: PATIENT STARTED IT 8 DAYS AGO DOSE:16 UNIT(S)
     Route: 051

REACTIONS (3)
  - Fatigue [Unknown]
  - Confusional state [Unknown]
  - Blood glucose increased [Unknown]
